FAERS Safety Report 19356768 (Version 1)
Quarter: 2021Q2

REPORT INFORMATION
  Report Type: Spontaneous
  Country: US (occurrence: US)
  Receive Date: 20210601
  Receipt Date: 20210601
  Transmission Date: 20210717
  Serious: No
  Sender: FDA-Public Use
  Company Number: US-BAUSCH-BL-2021-018674

PATIENT
  Sex: Female

DRUGS (1)
  1. EYE ITCH RELIEF [Suspect]
     Active Substance: KETOTIFEN FUMARATE
     Indication: EYE PRURITUS
     Route: 047

REACTIONS (2)
  - Drug ineffective [Unknown]
  - Eye irritation [Recovered/Resolved]
